FAERS Safety Report 4300204-2 (Version None)
Quarter: 2004Q1

REPORT INFORMATION
  Report Type: 
  Country: None (occurrence: None)
  Receive Date: 20040218
  Receipt Date: 20040205
  Transmission Date: 20041129
  Serious: Yes (Other)
  Sender: FDA-Public Use
  Company Number: 2004US000139

PATIENT
  Age: 52 Year
  Sex: Female

DRUGS (1)
  1. ADENOSCAN [Suspect]
     Indication: SCAN MYOCARDIAL PERFUSION

REACTIONS (4)
  - AURA [None]
  - CONVULSION [None]
  - MEMORY IMPAIRMENT [None]
  - SPEECH DISORDER [None]
